FAERS Safety Report 13861366 (Version 1)
Quarter: 2017Q3

REPORT INFORMATION
  Report Type: Spontaneous
  Country: US (occurrence: US)
  Receive Date: 20170811
  Receipt Date: 20170811
  Transmission Date: 20171127
  Serious: Yes (Hospitalization)
  Sender: FDA-Public Use
  Company Number: US-INDIVIOR LIMITED-INDV-103753-2017

PATIENT
  Sex: Female

DRUGS (1)
  1. SUBOXONE [Suspect]
     Active Substance: BUPRENORPHINE HYDROCHLORIDE\NALOXONE HYDROCHLORIDE
     Indication: PRODUCT USED FOR UNKNOWN INDICATION
     Dosage: 8MG FILM IN THE AM AND 1/2 OF AN 8 MG FILM IN THE PM
     Route: 065
     Dates: start: 2011

REACTIONS (3)
  - Mental disorder [Unknown]
  - Product use issue [Unknown]
  - Product preparation error [Unknown]
